FAERS Safety Report 6067749-9 (Version None)
Quarter: 2009Q1

REPORT INFORMATION
  Report Type: 
  Country: None (occurrence: None)
  Receive Date: 20090205
  Receipt Date: 20090202
  Transmission Date: 20090719
  Serious: Yes (Hospitalization)
  Sender: FDA-Public Use
  Company Number: JP-ABBOTT-08P-087-0490476-00

PATIENT
  Sex: Female
  Weight: 68.5 kg

DRUGS (12)
  1. HUMIRA [Suspect]
     Indication: RHEUMATOID ARTHRITIS
     Route: 058
     Dates: start: 20081111, end: 20081111
  2. METHOTREXATE [Concomitant]
     Indication: RHEUMATOID ARTHRITIS
  3. PREDNISOLONE [Concomitant]
     Indication: RHEUMATOID ARTHRITIS
     Route: 048
     Dates: end: 20081122
  4. PREDNISOLONE [Concomitant]
     Route: 048
     Dates: start: 20081130
  5. NABUMETONE [Concomitant]
     Indication: RHEUMATOID ARTHRITIS
  6. DICLOFENAC SODIUM [Concomitant]
     Indication: RHEUMATOID ARTHRITIS
  7. AMLODIPINE BESYLATE [Concomitant]
     Indication: HYPERTENSION
  8. VALSARTAN [Concomitant]
     Indication: HYPERTENSION
  9. MAGNESIUM OXIDE [Concomitant]
     Indication: CONSTIPATION
  10. SENNOSIDE [Concomitant]
     Indication: CONSTIPATION
  11. FUROSEMIDE [Concomitant]
     Indication: HYPERTENSION
  12. ISONIAZID [Concomitant]
     Indication: ANTIBIOTIC PROPHYLAXIS
     Dates: start: 20081111, end: 20081123

REACTIONS (1)
  - HYPERSENSITIVITY [None]
